FAERS Safety Report 23980985 (Version 1)
Quarter: 2024Q2

REPORT INFORMATION
  Report Type: Spontaneous
  Country: US (occurrence: None)
  Receive Date: 20240614
  Receipt Date: 20240614
  Transmission Date: 20240715
  Serious: No
  Sender: FDA-Public Use
  Company Number: None

PATIENT
  Age: 68 Year
  Sex: Male
  Weight: 104.33 kg

DRUGS (11)
  1. ADBRY [Suspect]
     Active Substance: TRALOKINUMAB-LDRM
  2. Adult Aspirin EC Low Strength [Concomitant]
  3. Edarbyclor Oral Tablet 40-12.5 MG [Concomitant]
  4. Clopidogrel + Aspirin Oral Therapy [Concomitant]
  5. Glimepiride Oral Tablet 1 MG [Concomitant]
  6. HYDROXYZINE HYDROCHLORIDE [Concomitant]
     Active Substance: HYDROXYZINE HYDROCHLORIDE
  7. LEVOCETIRIZINE DIHYDROCHLORIDE [Concomitant]
     Active Substance: LEVOCETIRIZINE DIHYDROCHLORIDE
  8. METFORMIN HYDROCHLORIDE [Concomitant]
     Active Substance: METFORMIN HYDROCHLORIDE
  9. ALLOPURINOL [Concomitant]
     Active Substance: ALLOPURINOL
  10. METOPROLOL SUCCINATE [Concomitant]
     Active Substance: METOPROLOL SUCCINATE
  11. Mupirocin Pantoprazole Sodium Rosuvastatin Calcium Triamcinolone Aceto [Concomitant]

REACTIONS (2)
  - Pruritus [None]
  - Skin abrasion [None]

NARRATIVE: CASE EVENT DATE: 20240531
